FAERS Safety Report 4534866-1 (Version None)
Quarter: 2004Q4

REPORT INFORMATION
  Report Type: 
  Country: None (occurrence: None)
  Receive Date: 20041222
  Receipt Date: 20040519
  Transmission Date: 20050328
  Serious: No
  Sender: FDA-Public Use
  Company Number: US-BRISTOL-MYERS SQUIBB COMPANY-12591731

PATIENT
  Sex: Female

DRUGS (9)
  1. PRAVACHOL [Suspect]
     Indication: BLOOD CHOLESTEROL INCREASED
     Route: 048
     Dates: start: 20010101
  2. EFFEXOR XR [Concomitant]
  3. K-DUR [Concomitant]
  4. VIOXX [Concomitant]
  5. ESTRATEST [Concomitant]
  6. RESTORIL [Concomitant]
  7. AMITRIPTYLINE HCL [Concomitant]
  8. DEMEROL [Concomitant]
  9. DIAZEPAM [Concomitant]

REACTIONS (1)
  - DYSGEUSIA [None]
